FAERS Safety Report 6742566-2 (Version None)
Quarter: 2010Q2

REPORT INFORMATION
  Report Type: 
  Country: None (occurrence: None)
  Receive Date: 20100526
  Receipt Date: 20100512
  Transmission Date: 20101027
  Serious: Yes (Death)
  Sender: FDA-Public Use
  Company Number: JP-AMGEN-QUU407900

PATIENT
  Sex: Male

DRUGS (17)
  1. REGPARA [Suspect]
     Indication: HYPERPARATHYROIDISM SECONDARY
     Route: 048
     Dates: end: 20100329
  2. ZYLORIC [Concomitant]
     Route: 048
  3. ASPIRIN [Concomitant]
     Route: 048
  4. PLETAL [Concomitant]
     Route: 048
  5. PANALDINE [Concomitant]
     Route: 048
  6. SIGMART [Concomitant]
     Route: 048
  7. TAKEPRON [Concomitant]
     Route: 048
  8. CALCIUM CARBONATE [Concomitant]
     Route: 048
  9. ITOROL [Concomitant]
     Route: 048
  10. VASOLAN [Concomitant]
     Route: 048
  11. DOPS [Concomitant]
     Route: 048
     Dates: start: 20100126
  12. LIVALO [Concomitant]
     Route: 048
  13. ROCALTROL [Concomitant]
     Route: 048
  14. MOBIC [Concomitant]
     Route: 048
  15. MEXITIL [Concomitant]
     Route: 048
  16. MIDODRINE HYDROCHLORIDE [Concomitant]
     Route: 048
     Dates: start: 20100126
  17. DARBEPOETIN ALFA [Concomitant]
     Route: 042

REACTIONS (1)
  - WOLFF-PARKINSON-WHITE SYNDROME [None]
